FAERS Safety Report 5341610-7 (Version None)
Quarter: 2007Q2

REPORT INFORMATION
  Report Type: 
  Country: None (occurrence: None)
  Receive Date: 20070529
  Receipt Date: 20070529
  Transmission Date: 20071010
  Serious: Yes (Death)
  Sender: FDA-Public Use
  Company Number: None

PATIENT
  Age: 38 Year
  Sex: Male
  Weight: 108.8633 kg

DRUGS (2)
  1. CYCLOBENZAPRINE HCL [Suspect]
     Indication: BACK PAIN
     Dosage: TAB 10MG 3 TAB DAILY
     Dates: start: 20060213, end: 20060303
  2. METHADONE HCL [Suspect]
     Indication: BACK PAIN
     Dosage: 10MG TAB ROX 2 TABS 3 TIMES A DAY 1 TAB EVER 3 HRS
     Dates: start: 20060301, end: 20060303

REACTIONS (2)
  - DRUG PRESCRIBING ERROR [None]
  - RESPIRATORY ARREST [None]
